FAERS Safety Report 8938580 (Version 1)
Quarter: 2012Q4

REPORT INFORMATION
  Report Type: Spontaneous
  Country: US (occurrence: None)
  Receive Date: 20121129
  Receipt Date: 20121129
  Transmission Date: 20130627
  Serious: Yes (Disabling)
  Sender: FDA-Public Use
  Company Number: None

PATIENT
  Age: 45 Year
  Sex: Female
  Weight: 81.65 kg

DRUGS (1)
  1. LEVOFLOXACIN [Suspect]
     Indication: UPPER RESPIRATORY INFECTION
     Dosage: 1 tablet every 24 hours
     Route: 048
     Dates: start: 20121117, end: 20121121

REACTIONS (2)
  - Pain in extremity [None]
  - Tendon rupture [None]
